FAERS Safety Report 4429199-8 (Version None)
Quarter: 2004Q3

REPORT INFORMATION
  Report Type: 
  Country: None (occurrence: None)
  Receive Date: 20040726
  Receipt Date: 20040525
  Transmission Date: 20050211
  Serious: No
  Sender: FDA-Public Use
  Company Number: USA040567814

PATIENT
  Age: 77 Year
  Sex: Female
  Weight: 75 kg

DRUGS (1)
  1. FORTEO [Suspect]
     Dates: start: 20040401, end: 20040515

REACTIONS (3)
  - BONE PAIN [None]
  - PAIN IN EXTREMITY [None]
  - SLEEP DISORDER [None]
